FAERS Safety Report 19478563 (Version 5)
Quarter: 2023Q2

REPORT INFORMATION
  Report Type: Report from Study
  Country: PY (occurrence: PY)
  Receive Date: 20210630
  Receipt Date: 20230608
  Transmission Date: 20230721
  Serious: Yes (Other)
  Sender: FDA-Public Use
  Company Number: PY-TAKEDA-2021TUS040381

PATIENT
  Age: 30 Year
  Sex: Male
  Weight: 78 kg

DRUGS (4)
  1. VELAGLUCERASE ALFA [Suspect]
     Active Substance: VELAGLUCERASE ALFA
     Indication: Gaucher^s disease type I
     Dosage: 45 INTERNATIONAL UNIT/KILOGRAM, Q2WEEKS
     Route: 042
     Dates: start: 2006
  2. VELAGLUCERASE ALFA [Suspect]
     Active Substance: VELAGLUCERASE ALFA
     Dosage: 45 INTERNATIONAL UNIT/KILOGRAM
     Route: 050
  3. VELAGLUCERASE ALFA [Suspect]
     Active Substance: VELAGLUCERASE ALFA
     Dosage: 40 INTERNATIONAL UNIT/KILOGRAM, Q2WEEKS
     Route: 042
     Dates: start: 201206
  4. VELAGLUCERASE ALFA [Suspect]
     Active Substance: VELAGLUCERASE ALFA
     Dosage: 40 INTERNATIONAL UNIT, Q2WEEKS
     Route: 042

REACTIONS (3)
  - COVID-19 [Recovered/Resolved]
  - Pregnancy of partner [Unknown]
  - Product dose omission issue [Unknown]

NARRATIVE: CASE EVENT DATE: 20210616
